FAERS Safety Report 8461786-2 (Version None)
Quarter: 2012Q2

REPORT INFORMATION
  Report Type: 
  Country: None (occurrence: None)
  Receive Date: 20120625
  Receipt Date: 20120619
  Transmission Date: 20120825
  Serious: No
  Sender: FDA-Public Use
  Company Number: US-BAYER-2012-062024

PATIENT
  Sex: Female

DRUGS (1)
  1. ULTRAVIST 150 [Suspect]
     Indication: DIAGNOSTIC PROCEDURE
     Dosage: 120 ML, ONCE
     Dates: start: 20120615, end: 20120615

REACTIONS (2)
  - URTICARIA [None]
  - BLOOD PRESSURE DECREASED [None]
